FAERS Safety Report 7519969-1 (Version None)
Quarter: 2011Q2

REPORT INFORMATION
  Report Type: 
  Country: None (occurrence: None)
  Receive Date: 20110602
  Receipt Date: 20110524
  Transmission Date: 20111010
  Serious: Yes (Other)
  Sender: FDA-Public Use
  Company Number: JP-B.I. PHARMACEUTICALS,INC./RIDGEFIELD-2011-BP-13709NB

PATIENT
  Age: 76 Year
  Sex: Male

DRUGS (8)
  1. ASPIRIN [Concomitant]
     Route: 048
  2. TREBIANOM [Concomitant]
     Route: 048
  3. ATENOTE [Concomitant]
     Route: 048
  4. LENIMEC [Concomitant]
     Route: 048
  5. PRADAXA [Suspect]
     Dosage: 300 MG
     Route: 065
     Dates: start: 20110402, end: 20110518
  6. DIART [Concomitant]
     Route: 048
  7. SPIRONOLACTONE [Concomitant]
     Route: 048
  8. AMIODARONE HYDROCHOLORIDE [Concomitant]
     Route: 048
     Dates: start: 20110415

REACTIONS (1)
  - RENAL IMPAIRMENT [None]
